FAERS Safety Report 5579272-6 (Version None)
Quarter: 2008Q1

REPORT INFORMATION
  Report Type: 
  Country: None (occurrence: None)
  Receive Date: 20080102
  Receipt Date: 20071226
  Transmission Date: 20080703
  Serious: Yes (Death, Hospitalization)
  Sender: FDA-Public Use
  Company Number: JP-MERCK-0712USA09215

PATIENT
  Age: 76 Year
  Sex: Female

DRUGS (6)
  1. FOSAMAX [Suspect]
     Indication: OSTEOPOROSIS
     Route: 048
     Dates: start: 20071210, end: 20071226
  2. TAKEPRON [Suspect]
     Route: 048
     Dates: start: 20071122, end: 20071226
  3. PREDONINE [Concomitant]
     Route: 048
     Dates: start: 20071122
  4. PREDONINE [Concomitant]
     Route: 048
  5. PREDONINE [Concomitant]
     Route: 048
     Dates: end: 20071226
  6. MAGNESIUM OXIDE [Concomitant]
     Route: 048
     Dates: start: 20071129, end: 20071226

REACTIONS (2)
  - SHOCK [None]
  - WHITE BLOOD CELL COUNT DECREASED [None]
